FAERS Safety Report 15247014 (Version 10)
Quarter: 2021Q1

REPORT INFORMATION
  Report Type: Report from Study
  Country: CN (occurrence: CN)
  Receive Date: 20180806
  Receipt Date: 20210206
  Transmission Date: 20210419
  Serious: Yes (Death, Life-Threatening, Hospitalization)
  Sender: FDA-Public Use
  Company Number: CN-AMGEN-CHNCT2018093375

PATIENT
  Age: 67 Year
  Sex: Male
  Weight: 71.2 kg

DRUGS (34)
  1. BLINATUMOMAB [Suspect]
     Active Substance: BLINATUMOMAB
     Indication: B PRECURSOR TYPE ACUTE LEUKAEMIA
     Dosage: 28 MICROGRAM, QD
     Route: 042
     Dates: start: 20180424, end: 20180703
  2. SULPERAZON [Concomitant]
     Active Substance: CEFOPERAZONE SODIUM\SULBACTAM SODIUM
     Dosage: 3 MILLIGRAM
     Route: 042
     Dates: start: 20180520, end: 20180530
  3. FUROSEMIDE. [Concomitant]
     Active Substance: FUROSEMIDE
     Dosage: 20 MILLIGRAM
     Route: 042
     Dates: start: 20180627, end: 20180709
  4. METHOTREXATE. [Concomitant]
     Active Substance: METHOTREXATE
     Dosage: 10?15 MILLIGRAM
     Route: 037
     Dates: start: 20180611, end: 20180704
  5. VANCOMYCIN HYDROCHLORIDE. [Concomitant]
     Active Substance: VANCOMYCIN HYDROCHLORIDE
     Dosage: 1000 MILLIGRAM
     Route: 042
     Dates: start: 20180626, end: 20190704
  6. PREDNISONE ACETATE [Concomitant]
     Active Substance: PREDNISONE ACETATE
     Dosage: 10 MILLIGRAM
     Route: 048
     Dates: start: 20180703, end: 20180709
  7. POTASSIUM CHLORIDE. [Concomitant]
     Active Substance: POTASSIUM CHLORIDE
     Dosage: 500 ?1000 MILLIGRAM, 1.5 ? 3 GRAM
     Dates: start: 20180602, end: 20180709
  8. NYSFUNGIN [Concomitant]
     Dosage: 300 MILLIGRAM
     Route: 050
     Dates: start: 20180619, end: 20180702
  9. MEROPENEM. [Concomitant]
     Active Substance: MEROPENEM
     Dosage: 1 GRAM
     Route: 042
     Dates: start: 20180708, end: 20180709
  10. GLUCOSE [Concomitant]
     Active Substance: DEXTROSE
     Dosage: 500 MILLIGRAM, 250 MILLILITER, AND 10 GRAM
     Route: 042
     Dates: start: 20180707, end: 20180709
  11. IBUPROFEN. [Concomitant]
     Active Substance: IBUPROFEN
     Dosage: 8 MILLILITER
     Route: 048
     Dates: start: 20180708, end: 20180708
  12. FAMOTIDINE. [Concomitant]
     Active Substance: FAMOTIDINE
     Dosage: 20 MILLIGRAM
     Route: 048
     Dates: start: 20180504, end: 20180615
  13. AVELOX [Concomitant]
     Active Substance: MOXIFLOXACIN HYDROCHLORIDE
     Dosage: 100 MILLIGRAM
     Route: 048
     Dates: start: 20180531, end: 20180615
  14. PIPERACILLIN SODIUM W/SULBACTAM SODIUM [Concomitant]
     Active Substance: PIPERACILLIN SODIUM\SULBACTAM SODIUM
     Dosage: 5 GRAM
     Route: 042
     Dates: start: 20180619, end: 20180620
  15. ALANYL GLUTAMINE [Concomitant]
     Active Substance: ALANYL GLUTAMINE
     Dosage: 10 GRAM
     Route: 042
     Dates: start: 20180708, end: 20180709
  16. SODIUM CHLORIDE. [Concomitant]
     Active Substance: SODIUM CHLORIDE
     Dosage: 0.09 MLILLIGRAM AND 0.09 GRAM
     Route: 037
     Dates: start: 20180522, end: 20180614
  17. HUMAN ALBUMIN [Concomitant]
     Active Substance: ALBUMIN HUMAN
     Dosage: 20 GRAM
     Route: 042
     Dates: start: 20180707, end: 20180709
  18. DEXAMETHASONE SODIUM PHOSPHATE. [Concomitant]
     Active Substance: DEXAMETHASONE SODIUM PHOSPHATE
     Dosage: 3?10 MILLIGRAM
     Dates: start: 20180425, end: 20180704
  19. MONTMORILLONITE [Concomitant]
     Active Substance: MONTMORILLONITE
     Dosage: 3 GRAM
     Route: 048
     Dates: start: 20180618, end: 20180619
  20. FLUCONAZOLE AND SODIUM CHLORIDE [Concomitant]
     Active Substance: FLUCONAZOLE
     Dosage: 300 MILLIGRAM
     Route: 048
     Dates: start: 20180619, end: 20180621
  21. ALBUMIN PREPARED FROM HUMAN PLASMA [Concomitant]
     Dosage: 20 GRAM
     Route: 042
     Dates: start: 20180707, end: 20180709
  22. FAT EMULSION NOS [Concomitant]
     Active Substance: EGG PHOSPHOLIPIDS\SAFFLOWER OIL\SOYBEAN OIL
     Dosage: 250 MILLILITER
     Route: 042
     Dates: start: 20180708, end: 20180709
  23. GLUCOSE;SODIUM CHLORIDE [Concomitant]
     Dosage: 500 MILLIGRAM
     Route: 042
     Dates: start: 20180707, end: 20180707
  24. FILGRASTIM [Concomitant]
     Active Substance: FILGRASTIM
     Dosage: 300 MICROGRAM
     Route: 058
     Dates: start: 20180620, end: 20180708
  25. CYTARABINE. [Concomitant]
     Active Substance: CYTARABINE
     Dosage: 50 MILLIGRAM
     Route: 037
     Dates: start: 20180611, end: 20180704
  26. GRANULOCYTE COLONY STIMULATING FACTOR [Concomitant]
     Active Substance: GRANULOCYTE COLONY-STIMULATING FACTOR NOS
     Dosage: 300 MICROGRAM
     Route: 058
     Dates: start: 20180620, end: 20180708
  27. COMBIZYM [PANCREATIN] [Concomitant]
     Dosage: 24 MILLIGRAM
     Route: 048
     Dates: start: 20180702, end: 20180709
  28. IMIPENEM [Concomitant]
     Active Substance: IMIPENEM
     Indication: RESPIRATORY FAILURE
     Dosage: 1 MILLIGRAM
     Route: 042
     Dates: start: 20180620, end: 20180709
  29. LIDOCAINE HYDROCHLORIDE. [Concomitant]
     Active Substance: LIDOCAINE HYDROCHLORIDE
     Dosage: 0.1 GRAM
     Route: 058
     Dates: start: 20180611, end: 20180704
  30. VORICONAZOLE. [Concomitant]
     Active Substance: VORICONAZOLE
     Dosage: 400 MILLIGRAM
     Route: 042
     Dates: start: 20180621, end: 20180709
  31. CALCIUM GLUCONATE. [Concomitant]
     Active Substance: CALCIUM GLUCONATE
     Dosage: 1 GRAM
     Route: 042
     Dates: start: 20180624, end: 20180709
  32. CEFACLOR. [Concomitant]
     Active Substance: CEFACLOR
     Dosage: 0.25 GRAM
     Route: 048
     Dates: start: 20180615, end: 20180619
  33. IMIPENEM+CILASTATIN [Concomitant]
     Active Substance: CILASTATIN SODIUM\IMIPENEM
     Dosage: 1 GRAM
     Route: 042
     Dates: start: 20180620, end: 20180709
  34. RBC [Concomitant]
     Active Substance: HUMAN RED BLOOD CELL
     Dosage: 2 UNK
     Route: 042
     Dates: start: 20180624, end: 20180624

REACTIONS (1)
  - Respiratory failure [Fatal]

NARRATIVE: CASE EVENT DATE: 20180709
